FAERS Safety Report 20562282 (Version 1)
Quarter: 2022Q1

REPORT INFORMATION
  Report Type: Spontaneous
  Country: FR (occurrence: FR)
  Receive Date: 20220307
  Receipt Date: 20220307
  Transmission Date: 20220424
  Serious: Yes (Congenital Anomaly)
  Sender: FDA-Public Use
  Company Number: FR-ABBVIE-22K-056-4299359-00

PATIENT
  Age: 2 Year
  Sex: Male

DRUGS (2)
  1. VALPROATE SODIUM [Suspect]
     Active Substance: VALPROATE SODIUM
     Indication: Maternal exposure timing unspecified
     Route: 064
  2. CARBAMAZEPINE [Suspect]
     Active Substance: CARBAMAZEPINE
     Indication: Maternal exposure timing unspecified
     Route: 064

REACTIONS (5)
  - Disturbance in attention [Not Recovered/Not Resolved]
  - Language disorder [Not Recovered/Not Resolved]
  - Dysmorphism [Not Recovered/Not Resolved]
  - Psychomotor skills impaired [Not Recovered/Not Resolved]
  - Foetal exposure during pregnancy [Unknown]

NARRATIVE: CASE EVENT DATE: 19930101
